FAERS Safety Report 17548310 (Version 1)
Quarter: 2020Q1

REPORT INFORMATION
  Report Type: Spontaneous
  Country: CN (occurrence: CN)
  Receive Date: 20200317
  Receipt Date: 20200317
  Transmission Date: 20200409
  Serious: Yes (Disabling)
  Sender: FDA-Public Use
  Company Number: CN-ABBVIE-20K-035-3317442-00

PATIENT
  Age: 82 Year
  Sex: Male
  Weight: 58 kg

DRUGS (5)
  1. ALUVIA 200/50 [Suspect]
     Active Substance: LOPINAVIR\RITONAVIR
     Indication: CORONA VIRUS INFECTION
  2. ROSUVASTATIN CALCIUM. [Suspect]
     Active Substance: ROSUVASTATIN CALCIUM
     Indication: HYPERLIPIDAEMIA
     Route: 048
     Dates: start: 20200203, end: 20200211
  3. ALUVIA 200/50 [Suspect]
     Active Substance: LOPINAVIR\RITONAVIR
     Indication: PNEUMONIA VIRAL
     Route: 048
     Dates: start: 20200203, end: 20200211
  4. CHLOROQUINE PHOSPHATE. [Suspect]
     Active Substance: CHLOROQUINE PHOSPHATE
     Indication: CORONA VIRUS INFECTION
     Route: 048
     Dates: start: 20200208, end: 20200211
  5. CHLOROQUINE PHOSPHATE. [Suspect]
     Active Substance: CHLOROQUINE PHOSPHATE
     Indication: PNEUMONIA VIRAL

REACTIONS (5)
  - Total bile acids increased [Recovering/Resolving]
  - Therapeutic response unexpected [Unknown]
  - Blood bilirubin increased [Recovering/Resolving]
  - Off label use [Recovered/Resolved]
  - Hepatocellular injury [Recovering/Resolving]

NARRATIVE: CASE EVENT DATE: 20200203
